FAERS Safety Report 6397640-X (Version None)
Quarter: 2009Q4

REPORT INFORMATION
  Report Type: 
  Country: None (occurrence: None)
  Receive Date: 20091012
  Receipt Date: 20090928
  Transmission Date: 20100525
  Serious: Yes (Other)
  Sender: FDA-Public Use
  Company Number: TW-MYLANLABS-2009S1016968

PATIENT
  Age: 45 Year
  Sex: Female

DRUGS (3)
  1. LAMOTRIGINE [Suspect]
     Indication: DEPRESSION
     Dosage: STARTED AT 25 MG/DAY ON DAY 10 AND GRADUALLY TITRATED TO 200 MG/DAY ON DAY 25
  2. TOPIRAMATE [Concomitant]
     Dosage: 100 MG/DAY
  3. BUPROPION HCL [Concomitant]
     Dosage: 150 MG/DAY

REACTIONS (1)
  - SJOGREN'S SYNDROME [None]
